FAERS Safety Report 7608816-5 (Version None)
Quarter: 2011Q3

REPORT INFORMATION
  Report Type: 
  Country: None (occurrence: None)
  Receive Date: 20110713
  Receipt Date: 20110713
  Transmission Date: 20111222
  Serious: Yes (Death, Life-Threatening, Other)
  Sender: FDA-Public Use
  Company Number: None

PATIENT
  Age: 77 Year
  Sex: Female
  Weight: 56.6996 kg

DRUGS (1)
  1. EXELON [Suspect]
     Indication: DEMENTIA

REACTIONS (5)
  - HALLUCINATION [None]
  - ANXIETY [None]
  - CONVERSION DISORDER [None]
  - DECREASED APPETITE [None]
  - MOBILITY DECREASED [None]
